FAERS Safety Report 9856760 (Version 1)
Quarter: 2014Q1

REPORT INFORMATION
  Report Type: Spontaneous
  Country: CH (occurrence: CH)
  Receive Date: 20140130
  Receipt Date: 20140130
  Transmission Date: 20141002
  Serious: Yes (Hospitalization, Other)
  Sender: FDA-Public Use
  Company Number: CH-PFIZER INC-2014027762

PATIENT
  Age: 82 Year
  Sex: Female

DRUGS (10)
  1. CELEBREX [Suspect]
     Indication: OSTEOARTHRITIS
     Dosage: 100 MG, 1X/DAY
     Route: 048
     Dates: end: 201312
  2. BRUFEN [Interacting]
     Indication: OSTEOARTHRITIS
     Dosage: 400 MG, 1X/DAY
     Route: 048
     Dates: end: 201312
  3. ASPIRIN CARDIO [Concomitant]
     Dosage: 100 MG, 1X/DAY
     Route: 048
  4. BELOC [Concomitant]
     Dosage: 25 MG, 1X/DAY
     Route: 048
  5. AMLODIPINE [Concomitant]
     Dosage: 5 MG, 1X/DAY
     Route: 048
     Dates: end: 201312
  6. COSAAR PLUS [Concomitant]
     Dosage: 1 DF (50/12.5 MG), 1X/DAY
     Route: 048
     Dates: end: 201312
  7. MAGNESIUM DIASPORAL [Concomitant]
     Dosage: 300 MG, 1X/DAY
     Route: 048
     Dates: end: 201312
  8. NEXIUM [Concomitant]
     Dosage: 40 MG, 1X/DAY
     Route: 048
     Dates: end: 201312
  9. OLFEN [Concomitant]
     Dosage: 1 DF, AS NEEDED
     Route: 062
     Dates: end: 201312
  10. HEMERAN ^NOVARTIS^ [Concomitant]
     Dosage: 1 DF, AS NEEDED
     Route: 062
     Dates: end: 201312

REACTIONS (7)
  - Drug interaction [Recovered/Resolved with Sequelae]
  - Myocardial infarction [Recovered/Resolved with Sequelae]
  - Ventricular fibrillation [Recovering/Resolving]
  - Cardiogenic shock [Recovering/Resolving]
  - Atrial fibrillation [Recovering/Resolving]
  - Ventricular extrasystoles [Recovering/Resolving]
  - Pulmonary oedema [Recovering/Resolving]
